FAERS Safety Report 18914611 (Version 1)
Quarter: 2021Q1

REPORT INFORMATION
  Report Type: Spontaneous
  Country: US (occurrence: US)
  Receive Date: 20210218
  Receipt Date: 20210218
  Transmission Date: 20210420
  Serious: Yes (Hospitalization)
  Sender: FDA-Public Use
  Company Number: US-TEVA-2021-US-1879685

PATIENT
  Age: 2 Month
  Sex: Male

DRUGS (10)
  1. RIFAMPIN. [Suspect]
     Active Substance: RIFAMPIN
     Indication: DISSEMINATED BACILLUS CALMETTE-GUERIN INFECTION
     Route: 065
  2. ETHAMBUTOL [Suspect]
     Active Substance: ETHAMBUTOL HYDROCHLORIDE
     Indication: MYCOBACTERIAL INFECTION
  3. ISONIAZID. [Suspect]
     Active Substance: ISONIAZID
     Indication: MYCOBACTERIAL INFECTION
  4. PYRAZINAMIDE. [Suspect]
     Active Substance: PYRAZINAMIDE
     Indication: DISSEMINATED BACILLUS CALMETTE-GUERIN INFECTION
     Route: 065
  5. BCG VACCINE [Suspect]
     Active Substance: BCG VACCINE
     Indication: IMMUNISATION
     Route: 048
  6. PYRAZINAMIDE. [Suspect]
     Active Substance: PYRAZINAMIDE
     Indication: MYCOBACTERIAL INFECTION
  7. POLIOMYELITIS VACCINE NOS [Concomitant]
     Active Substance: POLIOMYELITIS VACCINE
     Indication: POLIO IMMUNISATION
     Route: 048
  8. ETHAMBUTOL [Suspect]
     Active Substance: ETHAMBUTOL HYDROCHLORIDE
     Indication: DISSEMINATED BACILLUS CALMETTE-GUERIN INFECTION
     Route: 065
  9. ISONIAZID. [Suspect]
     Active Substance: ISONIAZID
     Indication: DISSEMINATED BACILLUS CALMETTE-GUERIN INFECTION
     Route: 065
  10. RIFAMPIN. [Suspect]
     Active Substance: RIFAMPIN
     Indication: MYCOBACTERIAL INFECTION

REACTIONS (5)
  - Small intestinal obstruction [Recovered/Resolved]
  - Disseminated Bacillus Calmette-Guerin infection [Recovered/Resolved]
  - Mycobacterial infection [Recovered/Resolved]
  - Paradoxical drug reaction [Recovered/Resolved]
  - Intestinal perforation [Recovered/Resolved]
